FAERS Safety Report 13651320 (Version 3)
Quarter: 2022Q4

REPORT INFORMATION
  Report Type: Spontaneous
  Country: AU (occurrence: AU)
  Receive Date: 20170614
  Receipt Date: 20221122
  Transmission Date: 20230113
  Serious: Yes (Other)
  Sender: FDA-Public Use
  Company Number: AU-PFIZER INC-2017252504

PATIENT
  Age: 44 Year
  Sex: Male

DRUGS (1)
  1. CRIZOTINIB [Suspect]
     Active Substance: CRIZOTINIB
     Indication: Anaplastic large-cell lymphoma
     Dosage: 250 MG, 2X/DAY

REACTIONS (1)
  - Lower respiratory tract infection [Unknown]
